FAERS Safety Report 15988324 (Version 2)
Quarter: 2019Q3

REPORT INFORMATION
  Report Type: Spontaneous
  Country: US (occurrence: US)
  Receive Date: 20190221
  Receipt Date: 20190805
  Transmission Date: 20191004
  Serious: Yes (Other)
  Sender: FDA-Public Use
  Company Number: US-ROCHE-2269597

PATIENT
  Sex: Female

DRUGS (6)
  1. PERJETA [Suspect]
     Active Substance: PERTUZUMAB
     Indication: BREAST CANCER
     Route: 065
     Dates: start: 201811
  2. PERJETA [Suspect]
     Active Substance: PERTUZUMAB
     Dosage: INFUSION
     Route: 065
     Dates: start: 20190116
  3. HERCEPTIN [Suspect]
     Active Substance: TRASTUZUMAB
     Dosage: INFUSION 3RD CYCLE
     Route: 042
     Dates: start: 20190212
  4. PERJETA [Suspect]
     Active Substance: PERTUZUMAB
     Dosage: MOST RECENT INFUSION(INFUSION 3RD CYCLE)
     Route: 065
     Dates: start: 20190212
  5. HERCEPTIN [Suspect]
     Active Substance: TRASTUZUMAB
     Dosage: INFUSION
     Route: 042
     Dates: start: 20190116
  6. HERCEPTIN [Suspect]
     Active Substance: TRASTUZUMAB
     Indication: BREAST CANCER
     Dosage: MOST RECENT INFUSION : 12-FEB-2019
     Route: 042
     Dates: start: 201811

REACTIONS (3)
  - Blindness [Not Recovered/Not Resolved]
  - Rash [Not Recovered/Not Resolved]
  - Dyspnoea [Not Recovered/Not Resolved]

NARRATIVE: CASE EVENT DATE: 20190212
